FAERS Safety Report 5415614-X (Version None)
Quarter: 2007Q3

REPORT INFORMATION
  Report Type: 
  Country: None (occurrence: None)
  Receive Date: 20070815
  Receipt Date: 20070703
  Transmission Date: 20080115
  Serious: Yes (Other)
  Sender: FDA-Public Use
  Company Number: ES-ROCHE-506019

PATIENT
  Age: 62 Year
  Sex: Female

DRUGS (1)
  1. BONIVA [Suspect]
     Indication: OSTEOPOROSIS PROPHYLAXIS
     Dosage: DRUG REPORTED TO HAVE STARTED IN 2007.
     Route: 048
     Dates: end: 20070501

REACTIONS (2)
  - LEUKOCYTOSIS [None]
  - OSTEONECROSIS [None]
